FAERS Safety Report 16092857 (Version 2)
Quarter: 2020Q2

REPORT INFORMATION
  Report Type: Spontaneous
  Country: US (occurrence: US)
  Receive Date: 20190320
  Receipt Date: 20200519
  Transmission Date: 20200713
  Serious: No
  Sender: FDA-Public Use
  Company Number: US-JNJFOC-20190231741

PATIENT
  Sex: Female
  Weight: 47.67 kg

DRUGS (2)
  1. WOMENS ROGAINE UNSCENTED [Suspect]
     Active Substance: MINOXIDIL
     Indication: ALOPECIA
     Dosage: QUARTER SIZE AMOUNT ONCE A DAY?(SPRAY)
     Route: 061
  2. TEMAZEPAM. [Concomitant]
     Active Substance: TEMAZEPAM
     Indication: SLEEP DISORDER THERAPY
     Dosage: 1 PILL PER DAY
     Route: 065

REACTIONS (2)
  - Incorrect dose administered [Unknown]
  - Precancerous cells present [Recovering/Resolving]
